FAERS Safety Report 9218190 (Version 2)
Quarter: 2013Q4

REPORT INFORMATION
  Report Type: Spontaneous
  Country: GB (occurrence: GB)
  Receive Date: 20130408
  Receipt Date: 20131029
  Transmission Date: 20140711
  Serious: Yes (Life-Threatening)
  Sender: FDA-Public Use
  Company Number: PHHY2013GB033203

PATIENT
  Age: 55 Year
  Sex: Female
  Weight: 88.5 kg

DRUGS (7)
  1. MIRTAZAPINE [Suspect]
     Indication: DEPRESSION
     Dosage: 15 MG, QD
     Dates: start: 20130321, end: 20130322
  2. MICRONOR [Concomitant]
     Dates: start: 20121112
  3. BENDROFLUMETHIAZIDE [Concomitant]
     Dates: start: 20121212
  4. DIXARIT [Concomitant]
     Dosage: UNK UKN, UNK
     Dates: start: 20121212, end: 20130109
  5. DIXARIT [Concomitant]
     Dosage: UNK UKN, UNK
     Dates: start: 20130211, end: 20130311
  6. FEXOFENADINE [Concomitant]
     Dates: start: 20121212
  7. PREDNISOLONE [Concomitant]
     Dates: start: 20130307, end: 20130312

REACTIONS (1)
  - Angioedema [Recovered/Resolved]
